FAERS Safety Report 6761280-0 (Version None)
Quarter: 2010Q2

REPORT INFORMATION
  Report Type: 
  Country: None (occurrence: None)
  Receive Date: 20100608
  Receipt Date: 20100602
  Transmission Date: 20101027
  Serious: Yes (Other)
  Sender: FDA-Public Use
  Company Number: JP-PFIZER INC-2010069589

PATIENT
  Age: 6 Year
  Sex: Male
  Weight: 25 kg

DRUGS (5)
  1. SOLU-MEDROL [Suspect]
     Indication: NEPHROTIC SYNDROME
     Dosage: 30 MG/KG, FOR 3 DAYS
  2. PREDNISOLONE [Concomitant]
     Indication: NEPHROTIC SYNDROME
     Dosage: 2 MG/KG, UNK
     Route: 042
  3. HEPARIN [Concomitant]
     Dosage: 144 IU/KG, UNK
     Route: 041
  4. DILAZEP [Concomitant]
     Indication: NEPHROTIC SYNDROME
     Dosage: 2 MG/KG, UNK
     Route: 048
  5. PITAVASTATIN [Concomitant]
     Indication: LIPIDS ABNORMAL
     Dosage: 0.02 MG/KG, UNK

REACTIONS (1)
  - SUBCLAVIAN VEIN THROMBOSIS [None]
